FAERS Safety Report 5050412-0 (Version None)
Quarter: 2006Q3

REPORT INFORMATION
  Report Type: 
  Country: None (occurrence: None)
  Receive Date: 20060707
  Receipt Date: 20060621
  Transmission Date: 20061208
  Serious: Yes (Other)
  Sender: FDA-Public Use
  Company Number: 2006EU001759

PATIENT
  Age: 15 Year
  Sex: Female
  Weight: 55 kg

DRUGS (2)
  1. PROTOPIC [Suspect]
     Indication: DERMATITIS ATOPIC
     Dosage: 0.1 %, BID, TOPICAL
     Route: 061
     Dates: start: 20050415, end: 20060505
  2. DEXERYL (WHITE SOFT PARAFFIN, PARAFFIN, LIQUID) [Concomitant]

REACTIONS (5)
  - APPLICATION SITE PAPULES [None]
  - APPLICATION SITE REACTION [None]
  - GRANULOMA SKIN [None]
  - PARAPSORIASIS [None]
  - PSEUDOCYST [None]
